FAERS Safety Report 6212558-0 (Version None)
Quarter: 2009Q2

REPORT INFORMATION
  Report Type: 
  Country: None (occurrence: None)
  Receive Date: 20090603
  Receipt Date: 20090522
  Transmission Date: 20091009
  Serious: Yes (Other)
  Sender: FDA-Public Use
  Company Number: PHHY2009JP20114

PATIENT
  Sex: Male

DRUGS (3)
  1. DIOVAN [Suspect]
     Indication: HYPERTENSION
     Dosage: 80 MG/DAY
     Route: 048
     Dates: start: 20090427, end: 20090511
  2. AMLODIPINE [Concomitant]
     Dosage: 5 MG/DAY
     Route: 048
  3. PLETAL [Concomitant]
     Dosage: 200 MG/DAY
     Route: 048

REACTIONS (1)
  - DYSGEUSIA [None]
